FAERS Safety Report 6989681-6 (Version None)
Quarter: 2010Q3

REPORT INFORMATION
  Report Type: 
  Country: None (occurrence: None)
  Receive Date: 20100916
  Receipt Date: 20100201
  Transmission Date: 20110219
  Serious: Yes (Hospitalization, Other)
  Sender: FDA-Public Use
  Company Number: AU-PFIZER INC-2010013208

PATIENT
  Age: 84 Year
  Sex: Female

DRUGS (7)
  1. LYRICA [Suspect]
     Indication: PAIN IN EXTREMITY
     Dosage: 75 MG, 2X/DAY
     Dates: start: 20100101, end: 20100101
  2. MESASAL [Concomitant]
     Indication: COLITIS ULCERATIVE
  3. PRILOSEC [Concomitant]
  4. ROCALTROL [Concomitant]
  5. KARVEA [Concomitant]
     Indication: BLOOD PRESSURE
  6. ZOCOR [Concomitant]
  7. ACETYLSALICYLIC ACID [Concomitant]

REACTIONS (4)
  - AMNESIA [None]
  - CONVULSION [None]
  - FATIGUE [None]
  - MENTAL IMPAIRMENT [None]
